FAERS Safety Report 11238491 (Version 1)
Quarter: 2015Q3

REPORT INFORMATION
  Report Type: Spontaneous
  Country: CA (occurrence: CA)
  Receive Date: 20150705
  Receipt Date: 20150705
  Transmission Date: 20151125
  Serious: Yes (Death, Life-Threatening, Hospitalization)
  Sender: FDA-Public Use
  Company Number: CA-TEVA-575560ACC

PATIENT
  Sex: Male

DRUGS (25)
  1. APO-BACLOFEN TABLETS- 10 MG [Concomitant]
     Route: 065
  2. CALCIUM [Concomitant]
     Active Substance: CALCIUM
     Route: 065
  3. PMS-POTASSIUM CHLORIDE [Concomitant]
     Route: 048
  4. APO-SALVENT CFC FREE [Concomitant]
     Dosage: METERED-DOSE (AEROSOL)
     Route: 065
  5. MILK OF MAGNESIA [Concomitant]
     Active Substance: MAGNESIUM HYDROXIDE
     Route: 065
  6. REMINYL [Concomitant]
     Active Substance: GALANTAMINE
     Dosage: CAPSULE, EXTENDED RELEASE
     Route: 065
  7. APO-FLAVOXATE [Concomitant]
     Route: 065
  8. APO-LACTULOSE [Concomitant]
     Route: 048
  9. APO-VALPROIC SYRUP [Concomitant]
     Route: 065
  10. SENNOSIDES. [Concomitant]
     Active Substance: SENNOSIDES
     Route: 065
  11. ACETAMINOPHEN. [Concomitant]
     Active Substance: ACETAMINOPHEN
     Route: 065
  12. MUCILLIUM (PLANTAGO SEED 50%) [Concomitant]
     Route: 065
  13. OXYGEN. [Concomitant]
     Active Substance: OXYGEN
     Dosage: GAS FOR INHALATION
     Route: 065
  14. THEOLAIR [Concomitant]
     Active Substance: THEOPHYLLINE ANHYDROUS
     Route: 065
  15. SEROQUEL [Suspect]
     Active Substance: QUETIAPINE FUMARATE
     Indication: PRODUCT USED FOR UNKNOWN INDICATION
     Dosage: 300 MILLIGRAM DAILY;
     Route: 065
  16. SEROQUEL [Suspect]
     Active Substance: QUETIAPINE FUMARATE
     Indication: DEMENTIA
     Dosage: 50 MILLIGRAM DAILY;
     Route: 065
  17. APO-DOMPERIDONE - TAB 10MG [Concomitant]
     Route: 065
  18. APO-LORAZEPAM TAB 1MG [Concomitant]
     Route: 065
  19. ATROVENT HFA [Concomitant]
     Active Substance: IPRATROPIUM BROMIDE
     Dosage: METERED-DOSE (AEROSOL)
     Route: 065
  20. RISPERIDONE. [Suspect]
     Active Substance: RISPERIDONE
     Indication: PRODUCT USED FOR UNKNOWN INDICATION
     Dosage: 25 MILLIGRAM DAILY;
     Route: 065
  21. APO-TRAZODONE TABLETS 50MG [Concomitant]
     Route: 065
  22. FLOVENT HFA [Concomitant]
     Active Substance: FLUTICASONE PROPIONATE
     Dosage: METERED-DOSE (AEROSOL)
     Route: 065
  23. RATIO-LENOLTEC NO 3 [Concomitant]
     Route: 065
  24. APO-LEVOCARB-TAB 25MG/100MG [Suspect]
     Active Substance: CARBIDOPA\LEVODOPA
     Indication: PRODUCT USED FOR UNKNOWN INDICATION
     Route: 065
  25. PMS-QUETIAPINE [Suspect]
     Active Substance: QUETIAPINE
     Indication: PRODUCT USED FOR UNKNOWN INDICATION
     Route: 065

REACTIONS (7)
  - Dysphagia [Fatal]
  - Hyperhidrosis [Fatal]
  - Lung infection [Fatal]
  - Musculoskeletal stiffness [Fatal]
  - Anxiety [Fatal]
  - Mood altered [Fatal]
  - Rash [Fatal]
